FAERS Safety Report 4774755-0 (Version None)
Quarter: 2005Q3

REPORT INFORMATION
  Report Type: 
  Country: None (occurrence: None)
  Receive Date: 20050921
  Receipt Date: 20050905
  Transmission Date: 20060218
  Serious: Yes (Other)
  Sender: FDA-Public Use
  Company Number: DE-GLAXOSMITHKLINE-D0047434A

PATIENT
  Age: 21 Year
  Sex: Female
  Weight: 87.3 kg

DRUGS (4)
  1. LAMICTAL [Suspect]
     Indication: PERSONALITY DISORDER
     Dosage: 100MG PER DAY
     Route: 065
     Dates: start: 20050805, end: 20050904
  2. L -THYROXINE [Concomitant]
     Indication: HYPOTHYROIDISM
     Dosage: 75MG PER DAY
     Route: 065
     Dates: start: 20050603
  3. TRUXAL [Concomitant]
     Dosage: 100MG PER DAY
     Route: 065
     Dates: start: 20050720
  4. LEPONEX [Concomitant]
     Dosage: 200MG PER DAY
     Route: 065
     Dates: start: 20050827

REACTIONS (3)
  - DRUG ERUPTION [None]
  - HEPATIC ENZYME INCREASED [None]
  - RASH [None]
